FAERS Safety Report 18598208 (Version 2)
Quarter: 2021Q1

REPORT INFORMATION
  Report Type: Spontaneous
  Country: US (occurrence: US)
  Receive Date: 20201209
  Receipt Date: 20210119
  Transmission Date: 20210419
  Serious: Yes (Death, Hospitalization, Other)
  Sender: FDA-Public Use
  Company Number: US-009507513-2012USA003516

PATIENT
  Age: 89 Year
  Sex: Male

DRUGS (1)
  1. KEYTRUDA [Suspect]
     Active Substance: PEMBROLIZUMAB
     Indication: NON-SMALL CELL LUNG CANCER
     Dosage: UNK

REACTIONS (7)
  - Myasthenia gravis [Fatal]
  - Immune-mediated myocarditis [Fatal]
  - Pericarditis [Fatal]
  - Atrioventricular block complete [Fatal]
  - Cerebrovascular accident [Fatal]
  - Immune-mediated hepatitis [Not Recovered/Not Resolved]
  - Immune-mediated myositis [Not Recovered/Not Resolved]
